FAERS Safety Report 21492609 (Version 2)
Quarter: 2022Q4

REPORT INFORMATION
  Report Type: Spontaneous
  Country: US (occurrence: US)
  Receive Date: 20221021
  Receipt Date: 20221028
  Transmission Date: 20230112
  Serious: Yes (Hospitalization, Other)
  Sender: FDA-Public Use
  Company Number: US-SA-2022SA426592

PATIENT
  Age: 22 Year
  Sex: Female

DRUGS (1)
  1. ACETAMINOPHEN\DIPHENHYDRAMINE [Suspect]
     Active Substance: ACETAMINOPHEN\DIPHENHYDRAMINE
     Dosage: UNK

REACTIONS (12)
  - Lip swelling [Unknown]
  - Lip blister [Unknown]
  - Intentional overdose [Unknown]
  - Toxicity to various agents [Unknown]
  - Peripheral swelling [Unknown]
  - Skin lesion [Unknown]
  - Blister [Unknown]
  - Speech disorder [Unknown]
  - Tachycardia [Unknown]
  - Delirium [Unknown]
  - Mydriasis [Unknown]
  - Urinary retention [Unknown]
